FAERS Safety Report 7127941-9 (Version None)
Quarter: 2010Q4

REPORT INFORMATION
  Report Type: 
  Country: None (occurrence: None)
  Receive Date: 20101112
  Receipt Date: 20101029
  Transmission Date: 20110411
  Serious: Yes (Other)
  Sender: FDA-Public Use
  Company Number: 2010S1000913

PATIENT
  Age: 61 Year
  Sex: Male

DRUGS (3)
  1. LIVALO [Suspect]
     Dosage: 4 MG; 1X; PO
     Route: 048
     Dates: start: 20100801
  2. BENICAR [Concomitant]
  3. OMEGA-3 FATTY ACIDS [Concomitant]

REACTIONS (1)
  - STENT PLACEMENT [None]
